FAERS Safety Report 21785988 (Version 1)
Quarter: 2022Q4

REPORT INFORMATION
  Report Type: Spontaneous
  Country: US (occurrence: US)
  Receive Date: 20221228
  Receipt Date: 20221228
  Transmission Date: 20230112
  Serious: No
  Sender: FDA-Public Use
  Company Number: US-drreddys-SPO/USA/22/0158689

PATIENT
  Age: 70 Year
  Sex: Female

DRUGS (21)
  1. LENALIDOMIDE [Suspect]
     Active Substance: LENALIDOMIDE
     Indication: Plasma cell myeloma
     Dosage: TAKE 1 CAPSULE BY MOUTH EVERY DAY AT BEDTIME ON DAYS 1-28 WITH NO BREAKS
     Route: 048
  2. ACYCLOVIR TAB 800MG [Concomitant]
     Indication: Product used for unknown indication
  3. ALLOPURINOL [Concomitant]
     Active Substance: ALLOPURINOL
     Indication: Product used for unknown indication
  4. ASPIRIN CHE 81MG [Concomitant]
     Indication: Product used for unknown indication
  5. CALCIUM TAB 500MG [Concomitant]
     Indication: Product used for unknown indication
  6. CLARITIN TAB 10MG [Concomitant]
     Indication: Product used for unknown indication
  7. CYMBALTA CPE 60MG [Concomitant]
     Indication: Product used for unknown indication
  8. DEXAMETHASONE [Concomitant]
     Active Substance: DEXAMETHASONE
     Indication: Product used for unknown indication
  9. FOLIC ACID TAB 400MCG [Concomitant]
     Indication: Product used for unknown indication
  10. LORAZEPAM TAB 2MG [Concomitant]
     Indication: Product used for unknown indication
  11. MAGNESIUM TAB 250MG [Concomitant]
     Indication: Product used for unknown indication
  12. MECLIZINE HC TAB 25MG [Concomitant]
     Indication: Product used for unknown indication
  13. MELOXICAM [Concomitant]
     Active Substance: MELOXICAM
     Indication: Product used for unknown indication
  14. METHOCA BAMO TAB 750MG [Concomitant]
     Indication: Product used for unknown indication
  15. MORPHINE SUL TAB 15MG [Concomitant]
     Indication: Product used for unknown indication
  16. OMEPRAZOLE [Concomitant]
     Active Substance: OMEPRAZOLE
     Indication: Product used for unknown indication
  17. PRAVASTATIN SODIUM [Concomitant]
     Active Substance: PRAVASTATIN SODIUM
     Indication: Product used for unknown indication
  18. SINGULAIR CHE 5MG [Concomitant]
     Indication: Product used for unknown indication
  19. TYLENOL CAP 325MG [Concomitant]
     Indication: Product used for unknown indication
  20. VALACYCLOVIR TAB 500MG [Concomitant]
     Indication: Product used for unknown indication
  21. VITAMIN D TAB 25 MCG(1000 [Concomitant]
     Indication: Product used for unknown indication

REACTIONS (1)
  - Product dose omission issue [Unknown]
